FAERS Safety Report 9092520 (Version 3)
Quarter: 2014Q1

REPORT INFORMATION
  Report Type: Spontaneous
  Country: MA (occurrence: MA)
  Receive Date: 20130201
  Receipt Date: 20140130
  Transmission Date: 20141002
  Serious: Yes (Hospitalization)
  Sender: FDA-Public Use
  Company Number: PHHY2013MA007253

PATIENT
  Age: 19 Year
  Sex: Female

DRUGS (2)
  1. VALPROIC ACID [Suspect]
     Indication: EPILEPSY
     Dosage: 1000 MG, DAILY
  2. PHENOBARBITAL [Suspect]
     Indication: EPILEPSY
     Dosage: 100 MG, DAILY

REACTIONS (30)
  - Interstitial lung disease [Recovering/Resolving]
  - Lung consolidation [Recovering/Resolving]
  - Chills [Recovering/Resolving]
  - Cough [Recovering/Resolving]
  - Rhinorrhoea [Recovering/Resolving]
  - Influenza like illness [Recovering/Resolving]
  - Anaemia [Recovering/Resolving]
  - Toxic epidermal necrolysis [Recovering/Resolving]
  - Dermatitis exfoliative [Recovering/Resolving]
  - Pyrexia [Recovering/Resolving]
  - Dyspnoea [Recovering/Resolving]
  - Lymphocytic infiltration [Recovering/Resolving]
  - Epidermal necrosis [Recovering/Resolving]
  - Nikolsky^s sign [Recovering/Resolving]
  - Inflammatory marker increased [Recovering/Resolving]
  - Blister [Recovering/Resolving]
  - Eosinophilia [Recovering/Resolving]
  - White blood cell count increased [Recovering/Resolving]
  - Stevens-Johnson syndrome [Recovering/Resolving]
  - Drug eruption [Recovering/Resolving]
  - Rash [Recovering/Resolving]
  - Rash pustular [Recovering/Resolving]
  - Rash erythematous [Recovering/Resolving]
  - Conjunctivitis [Recovering/Resolving]
  - Vulvar erosion [Recovering/Resolving]
  - Oral mucosa erosion [Recovering/Resolving]
  - Conjunctival erosion [Recovering/Resolving]
  - Skin discolouration [Recovering/Resolving]
  - Cytomegalovirus infection [Recovering/Resolving]
  - Viraemia [Recovering/Resolving]
